FAERS Safety Report 15798100 (Version 1)
Quarter: 2019Q1

REPORT INFORMATION
  Report Type: Spontaneous
  Country: US (occurrence: US)
  Receive Date: 20190103
  Receipt Date: 20190103
  Transmission Date: 20190417
  Serious: No
  Sender: FDA-Public Use
  Company Number: None

PATIENT

DRUGS (1)
  1. DOXEPIN HCL DOXEPIN [Suspect]
     Active Substance: DOXEPIN HYDROCHLORIDE
     Route: 048

REACTIONS (3)
  - Transcription medication error [None]
  - Product dispensing error [None]
  - Intercepted product dispensing error [None]
